FAERS Safety Report 5701156-0 (Version None)
Quarter: 2008Q2

REPORT INFORMATION
  Report Type: 
  Country: None (occurrence: None)
  Receive Date: 20080410
  Receipt Date: 20080331
  Transmission Date: 20081010
  Serious: Yes (Other)
  Sender: FDA-Public Use
  Company Number: US-PFIZER INC-2008028253

PATIENT
  Sex: Male
  Weight: 79.4 kg

DRUGS (3)
  1. LIPITOR [Suspect]
     Indication: BLOOD CHOLESTEROL
     Dates: start: 20030101, end: 20080325
  2. TENORMIN [Concomitant]
     Indication: HYPERTENSION
  3. NORVASC [Concomitant]

REACTIONS (1)
  - RENAL CELL CARCINOMA [None]
